FAERS Safety Report 6781528-6 (Version None)
Quarter: 2010Q2

REPORT INFORMATION
  Report Type: 
  Country: None (occurrence: None)
  Receive Date: 20100617
  Receipt Date: 20100617
  Transmission Date: 20101027
  Serious: No
  Sender: FDA-Public Use
  Company Number: None

PATIENT
  Sex: Female
  Weight: 93.441 kg

DRUGS (3)
  1. LASIX [Suspect]
     Indication: FLUID RETENTION
  2. LASIX [Suspect]
     Indication: POLLAKIURIA
  3. LASIX [Suspect]
     Indication: PULMONARY HYPERTENSION

REACTIONS (6)
  - ABASIA [None]
  - ABDOMINAL DISCOMFORT [None]
  - DIARRHOEA [None]
  - MUSCLE SPASMS [None]
  - OEDEMA PERIPHERAL [None]
  - THERAPEUTIC PRODUCT INEFFECTIVE [None]
